FAERS Safety Report 4988067-3 (Version None)
Quarter: 2006Q2

REPORT INFORMATION
  Report Type: 
  Country: None (occurrence: None)
  Receive Date: 20060425
  Receipt Date: 20060412
  Transmission Date: 20061013
  Serious: Yes (Death)
  Sender: FDA-Public Use
  Company Number: 2006050873

PATIENT
  Age: 69 Year
  Sex: Female

DRUGS (5)
  1. SINEQUAN [Suspect]
     Indication: ILL-DEFINED DISORDER
  2. DOXYCYCLINE [Suspect]
     Indication: ILL-DEFINED DISORDER
  3. LORAZEPAM [Suspect]
     Indication: ILL-DEFINED DISORDER
  4. SIMVASTATIN [Suspect]
     Indication: ILL-DEFINED DISORDER
  5. ASPIRIN [Suspect]
     Indication: ILL-DEFINED DISORDER

REACTIONS (1)
  - OVERDOSE [None]
